FAERS Safety Report 20429669 (Version 1)
Quarter: 2022Q1

REPORT INFORMATION
  Report Type: Report from Study
  Country: FR (occurrence: FR)
  Receive Date: 20220204
  Receipt Date: 20220204
  Transmission Date: 20220423
  Serious: Yes (Hospitalization)
  Sender: FDA-Public Use
  Company Number: FR-SERVIER-S19009027

PATIENT

DRUGS (5)
  1. ONCASPAR [Suspect]
     Active Substance: PEGASPARGASE
     Indication: Acute lymphocytic leukaemia
     Dosage: 1462.5 IU, SINGLE, D12
     Route: 042
     Dates: start: 20190712, end: 20190712
  2. VINCRISTINE [Suspect]
     Active Substance: VINCRISTINE
     Indication: Acute lymphocytic leukaemia
     Dosage: 0.88 MG (D8, D15, D22, D29)
     Route: 042
     Dates: start: 20190709, end: 20190730
  3. METHOTREXATE SODIUM [Suspect]
     Active Substance: METHOTREXATE SODIUM
     Indication: Acute lymphocytic leukaemia
     Dosage: 10 MG D9, D18 AND D24
     Route: 037
     Dates: start: 20190710, end: 20190725
  4. DAUNORUBICIN [Suspect]
     Active Substance: DAUNORUBICIN
     Indication: Acute lymphocytic leukaemia
     Dosage: 17.5 MG D8, D15, D22 AND D29
     Route: 042
     Dates: start: 20190709, end: 20190730
  5. DEXAMETHASONE [Suspect]
     Active Substance: DEXAMETHASONE
     Indication: Acute lymphocytic leukaemia
     Dosage: 6 MG ON D8 TO D28
     Route: 048
     Dates: start: 20190709, end: 20190729

REACTIONS (2)
  - Neuralgia [Not Recovered/Not Resolved]
  - Mucosal inflammation [Not Recovered/Not Resolved]

NARRATIVE: CASE EVENT DATE: 20190730
